FAERS Safety Report 21056041 (Version 2)
Quarter: 2022Q3

REPORT INFORMATION
  Report Type: Spontaneous
  Country: US (occurrence: US)
  Receive Date: 20220708
  Receipt Date: 20220726
  Transmission Date: 20221027
  Serious: No
  Sender: FDA-Public Use
  Company Number: US-AMGEN-USASP2022114528

PATIENT

DRUGS (1)
  1. ERENUMAB [Suspect]
     Active Substance: ERENUMAB
     Indication: Headache
     Dosage: UNK
     Route: 065

REACTIONS (2)
  - Medication overuse headache [Unknown]
  - Therapeutic product effect incomplete [Unknown]
